FAERS Safety Report 7754419-1 (Version None)
Quarter: 2011Q3

REPORT INFORMATION
  Report Type: 
  Country: None (occurrence: None)
  Receive Date: 20110915
  Receipt Date: 20110906
  Transmission Date: 20111222
  Serious: Yes (Death, Hospitalization)
  Sender: FDA-Public Use
  Company Number: US-ELI_LILLY_AND_COMPANY-US201108004036

PATIENT
  Age: 20 Year
  Sex: Female
  Weight: 78 kg

DRUGS (5)
  1. DOPAMINE HCL [Concomitant]
     Dosage: UNK, UNKNOWN
     Route: 065
  2. VANCOMYCIN [Concomitant]
     Dosage: UNK, UNKNOWN
     Route: 065
  3. ROCEPHIN [Concomitant]
     Dosage: UNK, UNKNOWN
     Route: 065
  4. XIGRIS [Suspect]
     Indication: SEPTIC SHOCK
     Dosage: 24 MCG/KG/HR FOR 4 HOURS
     Route: 042
     Dates: start: 20110810
  5. LEVOPHED [Concomitant]
     Dosage: UNK, UNKNOWN
     Route: 065

REACTIONS (1)
  - DEATH [None]
